FAERS Safety Report 9045596 (Version 1)
Quarter: 2013Q1

REPORT INFORMATION
  Report Type: Report from Study
  Country: US (occurrence: US)
  Receive Date: 20130131
  Receipt Date: 20130131
  Transmission Date: 20140127
  Serious: No
  Sender: FDA-Public Use
  Company Number: US-ABBOTT-12P-163-1010969-00

PATIENT
  Sex: Female
  Weight: 64.47 kg

DRUGS (3)
  1. HUMIRA [Suspect]
     Indication: PSORIASIS
     Dates: start: 201210
  2. SOMA [Concomitant]
     Indication: ANXIETY
  3. XANAX [Concomitant]
     Indication: ANXIETY

REACTIONS (2)
  - Migraine [Recovered/Resolved]
  - Furuncle [Recovering/Resolving]
